FAERS Safety Report 4269554-2 (Version None)
Quarter: 2004Q1

REPORT INFORMATION
  Report Type: 
  Country: None (occurrence: None)
  Receive Date: 20040113
  Receipt Date: 20030109
  Transmission Date: 20041129
  Serious: Yes (Hospitalization)
  Sender: FDA-Public Use
  Company Number: CA-BRISTOL-MYERS SQUIBB COMPANY-12159638

PATIENT
  Age: 85 Year
  Sex: Female
  Weight: 49 kg

DRUGS (8)
  1. TEQUIN [Suspect]
     Indication: PNEUMONIA
     Route: 048
     Dates: start: 20021103, end: 20021113
  2. DIOVAN [Concomitant]
  3. COUMADIN [Concomitant]
  4. ZOCOR [Concomitant]
     Dosage: AT HOUR OF SLEEP
  5. LASIX [Concomitant]
  6. SOTALOL HCL [Concomitant]
  7. RENEDIL [Concomitant]
  8. SPIRONOLACTONE [Concomitant]

REACTIONS (2)
  - CARDIAC FAILURE CONGESTIVE [None]
  - HYPOGLYCAEMIA [None]
